FAERS Safety Report 5639738-7 (Version None)
Quarter: 2008Q1

REPORT INFORMATION
  Report Type: 
  Country: None (occurrence: None)
  Receive Date: 20080222
  Receipt Date: 20080212
  Transmission Date: 20080703
  Serious: Yes (Hospitalization)
  Sender: FDA-Public Use
  Company Number: GXKR2008US01605

PATIENT
  Age: 55 Year
  Sex: Male

DRUGS (2)
  1. AMOXICILLIN TRIHYDRATE [Suspect]
  2. AMOXICILLIN TRIHYDRATE [Suspect]
     Dosage: 500 MG, ONCE/SINGLE, ORAL
     Route: 048

REACTIONS (3)
  - MENINGITIS ASEPTIC [None]
  - PHONOPHOBIA [None]
  - TACHYCARDIA [None]
